FAERS Safety Report 8388749 (Version 3)
Quarter: 2014Q2

REPORT INFORMATION
  Report Type: Spontaneous
  Country: US (occurrence: US)
  Receive Date: 20120203
  Receipt Date: 20140617
  Transmission Date: 20141212
  Serious: Yes (Other)
  Sender: FDA-Public Use
  Company Number: US-PFIZER INC-2012026627

PATIENT
  Age: 60 Year
  Sex: Female
  Weight: 70.3 kg

DRUGS (3)
  1. ADVIL [Suspect]
     Indication: HEADACHE
     Dosage: UNK
     Route: 048
     Dates: start: 201112, end: 201201
  2. ADVIL [Suspect]
     Indication: PAIN
     Dosage: UNK
     Dates: start: 20120130
  3. OXYGEN [Concomitant]
     Indication: CHRONIC OBSTRUCTIVE PULMONARY DISEASE
     Dosage: UNK

REACTIONS (5)
  - Loss of consciousness [Unknown]
  - Decreased appetite [Unknown]
  - Hypotension [Unknown]
  - Drug ineffective [Unknown]
  - Drug ineffective [Unknown]
